FAERS Safety Report 18792933 (Version 2)
Quarter: 2021Q1

REPORT INFORMATION
  Report Type: Spontaneous
  Country: GB (occurrence: GB)
  Receive Date: 20210127
  Receipt Date: 20210217
  Transmission Date: 20210419
  Serious: Yes (Other)
  Sender: FDA-Public Use
  Company Number: GB-TEVA-2021-GB-1871458

PATIENT
  Age: 77 Year
  Sex: Male
  Weight: 63 kg

DRUGS (15)
  1. SALBUTAMOL [Concomitant]
     Active Substance: ALBUTEROL
     Dosage: AS A RELIEVER
     Route: 055
     Dates: start: 20200320
  2. URSODEOXYCHOLIC ACID [Concomitant]
     Active Substance: URSODIOL
     Dosage: 3 DOSAGE FORMS DAILY;
     Route: 065
     Dates: start: 20191209
  3. LORAZEPAM. [Concomitant]
     Active Substance: LORAZEPAM
     Dosage: HALF  TABLET  =NOCTE UNDER THE TONGUE  LET IS D...
     Dates: start: 20201116, end: 20201214
  4. OTOMIZE [Concomitant]
     Dosage: 3 DOSAGE FORMS DAILY;
     Dates: start: 20201215
  5. URSODEOXYCHOLIC ACID [Suspect]
     Active Substance: URSODIOL
     Dosage: 250 MG
     Dates: start: 20210111
  6. CLARITHROMYCIN. [Concomitant]
     Active Substance: CLARITHROMYCIN
     Dosage: 2 DOSAGE FORMS DAILY; (PLEASE COMPLETE THE COURSE)
     Dates: start: 20201221, end: 20201228
  7. BUTEC [Concomitant]
     Active Substance: BUPRENORPHINE
     Dates: start: 20201102, end: 20201130
  8. FOSTAIR [Concomitant]
     Active Substance: BECLOMETHASONE\FORMOTEROL
     Dosage: 4 DOSAGE FORMS DAILY;
     Route: 055
     Dates: start: 20200406
  9. FUROSEMIDE. [Concomitant]
     Active Substance: FUROSEMIDE
     Dosage: 2 DOSAGE FORMS DAILY; ONE IN MORNING AND ONE AT LUNCHTIME
     Dates: start: 20191209
  10. NICORANDIL [Concomitant]
     Active Substance: NICORANDIL
     Dosage: 1 DOSAGE FORMS DAILY;
     Dates: start: 20191209
  11. GLYCERYL TRINITRATE [Concomitant]
     Active Substance: NITROGLYCERIN
     Dosage: UNDER THE TONGUE WHEN REQUIRED F...
     Route: 060
     Dates: start: 20191209
  12. AMISULPRIDE [Concomitant]
     Active Substance: AMISULPRIDE
     Dosage: 2 DOSAGE FORMS DAILY;
     Dates: start: 20201029
  13. APIXABAN [Concomitant]
     Active Substance: APIXABAN
     Dosage: 2 DOSAGE FORMS DAILY;
     Dates: start: 20200406
  14. LAXIDO [Concomitant]
     Active Substance: POLYETHYLENE GLYCOL 3350\POTASSIUM CHLORIDE\SODIUM BICARBONATE\SODIUM CHLORIDE
     Dosage: 1?2 DAILY
     Dates: start: 20191209
  15. ZOLPIDEM [Concomitant]
     Active Substance: ZOLPIDEM TARTRATE
     Dosage: ASD BY PSYCHIATRY
     Dates: start: 20201029

REACTIONS (1)
  - Lip swelling [Recovering/Resolving]

NARRATIVE: CASE EVENT DATE: 20210111
